FAERS Safety Report 7420947-1 (Version None)
Quarter: 2011Q2

REPORT INFORMATION
  Report Type: 
  Country: None (occurrence: None)
  Receive Date: 20110418
  Receipt Date: 20110411
  Transmission Date: 20111010
  Serious: Yes (Other)
  Sender: FDA-Public Use
  Company Number: B0713422A

PATIENT

DRUGS (1)
  1. SERETIDE 50MCG/500MCG [Suspect]
     Indication: PRODUCT USED FOR UNKNOWN INDICATION
     Route: 065

REACTIONS (3)
  - DEVICE MALFUNCTION [None]
  - ASTHMA [None]
  - PRODUCT QUALITY ISSUE [None]
